FAERS Safety Report 5341054-8 (Version None)
Quarter: 2007Q2

REPORT INFORMATION
  Report Type: 
  Country: None (occurrence: None)
  Receive Date: 20070405
  Receipt Date: 20070125
  Transmission Date: 20071010
  Serious: No
  Sender: FDA-Public Use
  Company Number: US200701005438

PATIENT
  Age: 58 Year
  Sex: Female

DRUGS (8)
  1. CYMBALTA [Suspect]
     Indication: DEPRESSION
     Dosage: SEE IMAGE
     Dates: start: 20061101
  2. CLONIDINE [Concomitant]
  3. LIPITOR [Concomitant]
  4. GLUCOVANCE [Concomitant]
  5. DEXEDRINE (DEXAMPHETAMINE SULFATE) [Concomitant]
  6. FUROSEMIDE [Concomitant]
  7. LISINOPRIL [Concomitant]
  8. AMBIEN [Concomitant]

REACTIONS (3)
  - DRUG INEFFECTIVE [None]
  - HYPERHIDROSIS [None]
  - ONYCHOMADESIS [None]
